FAERS Safety Report 8133760-7 (Version None)
Quarter: 2012Q1

REPORT INFORMATION
  Report Type: 
  Country: None (occurrence: None)
  Receive Date: 20120213
  Receipt Date: 20120213
  Transmission Date: 20120608
  Serious: Yes (Other)
  Sender: FDA-Public Use
  Company Number: None

PATIENT
  Age: 21 Year
  Sex: Female
  Weight: 57.152 kg

DRUGS (1)
  1. ACTEMRA [Suspect]
     Indication: ARTHRITIS
     Dosage: 500 MG
     Route: 041
     Dates: start: 20110809, end: 20111104

REACTIONS (2)
  - NEUTROPENIA [None]
  - HERPES SIMPLEX [None]
